FAERS Safety Report 10725650 (Version 1)
Quarter: 2015Q1

REPORT INFORMATION
  Report Type: Spontaneous
  Country: US (occurrence: None)
  Receive Date: 20150116
  Receipt Date: 20150116
  Transmission Date: 20150721
  Serious: Yes (Hospitalization)
  Sender: FDA-Public Use
  Company Number: None

PATIENT
  Age: 83 Year
  Sex: Male
  Weight: 72.3 kg

DRUGS (1)
  1. CEFEPIME [Suspect]
     Active Substance: CEFEPIME\CEFEPIME HYDROCHLORIDE
     Route: 042
     Dates: start: 20131221, end: 20140105

REACTIONS (3)
  - Rash pruritic [None]
  - Acute kidney injury [None]
  - Urticaria [None]

NARRATIVE: CASE EVENT DATE: 20140105
